FAERS Safety Report 12086257 (Version 1)
Quarter: 2016Q1

REPORT INFORMATION
  Report Type: Spontaneous
  Country: US (occurrence: US)
  Receive Date: 20160217
  Receipt Date: 20160217
  Transmission Date: 20160526
  Serious: No
  Sender: FDA-Public Use
  Company Number: US-ALLERGAN-1512533US

PATIENT
  Age: 74 Year
  Sex: Female
  Weight: 79.82 kg

DRUGS (5)
  1. ATORVASTATIN [Concomitant]
     Active Substance: ATORVASTATIN
  2. LOTRAMINA [Concomitant]
     Indication: HYPERTENSION
     Dosage: 100 MG, QHS
  3. METOPROLOL TARTRATE. [Concomitant]
     Active Substance: METOPROLOL TARTRATE
     Indication: HYPERTENSION
     Dosage: 50 MG, QAM
  4. RESTASIS [Suspect]
     Active Substance: CYCLOSPORINE
     Indication: DRY EYE
     Dosage: 2 GTT, Q12H
     Route: 047
     Dates: start: 20150629
  5. VIVELLE-DOT [Concomitant]
     Active Substance: ESTRADIOL
     Indication: OESTROGEN THERAPY
     Route: 062

REACTIONS (1)
  - Headache [Not Recovered/Not Resolved]

NARRATIVE: CASE EVENT DATE: 20150629
